FAERS Safety Report 24062861 (Version 2)
Quarter: 2024Q3

REPORT INFORMATION
  Report Type: Spontaneous
  Country: CN (occurrence: CN)
  Receive Date: 20240709
  Receipt Date: 20240813
  Transmission Date: 20241017
  Serious: Yes (Other)
  Sender: SHENZHEN TECHDOW PHARMACEUTICAL
  Company Number: CN-91440300279544901A-J2024HPR000397

PATIENT
  Age: 71 Year
  Sex: Male
  Weight: 62 kg

DRUGS (2)
  1. ENOXAPARIN SODIUM [Suspect]
     Active Substance: ENOXAPARIN SODIUM
     Indication: Aortic thrombosis
     Dosage: 2000IU,QD
     Dates: start: 20240620, end: 20240620
  2. CEFOPERAZONE SODIUM\SULBACTAM SODIUM [Concomitant]
     Active Substance: CEFOPERAZONE SODIUM\SULBACTAM SODIUM
     Indication: Wound secretion
     Dosage: 3G,EVERY 8 HOURS
     Route: 041
     Dates: start: 20240620, end: 20240621

REACTIONS (2)
  - Platelet count decreased [Recovering/Resolving]
  - Stoma site haemorrhage [Unknown]

NARRATIVE: CASE EVENT DATE: 20240621
